FAERS Safety Report 4971101-4 (Version None)
Quarter: 2006Q1

REPORT INFORMATION
  Report Type: 
  Country: None (occurrence: None)
  Receive Date: 20060228
  Receipt Date: 20051227
  Transmission Date: 20060701
  Serious: Yes (Death)
  Sender: FDA-Public Use
  Company Number: 05P-163-0320844-00

PATIENT
  Sex: Male

DRUGS (1)
  1. TRICOR [Suspect]
     Dosage: 145 MG, 1 IN 1 D

REACTIONS (1)
  - DEATH [None]
